FAERS Safety Report 11604469 (Version 1)
Quarter: 2015Q3

REPORT INFORMATION
  Report Type: Spontaneous
  Country: US (occurrence: US)
  Receive Date: 20150916
  Receipt Date: 20150916
  Transmission Date: 20151125
  Serious: Yes (Hospitalization, Other)
  Sender: FDA-Public Use
  Company Number: US-ELI_LILLY_AND_COMPANY-US201405003526

PATIENT
  Age: 53 Year
  Sex: Male

DRUGS (2)
  1. HUMALOG [Suspect]
     Active Substance: INSULIN LISPRO
     Indication: DIABETES MELLITUS
     Dosage: UNK
     Route: 065
  2. LANTUS [Concomitant]
     Active Substance: INSULIN GLARGINE

REACTIONS (8)
  - Blood glucose decreased [Unknown]
  - Tremor [Unknown]
  - Oedema peripheral [Unknown]
  - Gingival disorder [Unknown]
  - Blood glucose increased [Unknown]
  - Tooth loss [Not Recovered/Not Resolved]
  - Malaise [Unknown]
  - Ingrowing nail [Unknown]
